FAERS Safety Report 15134411 (Version 2)
Quarter: 2018Q3

REPORT INFORMATION
  Report Type: Report from Study
  Country: IT (occurrence: IT)
  Receive Date: 20180712
  Receipt Date: 20180815
  Transmission Date: 20181010
  Serious: Yes (Hospitalization)
  Sender: FDA-Public Use
  Company Number: IT-TEVA-2018-IT-921123

PATIENT
  Age: 53 Year
  Sex: Female

DRUGS (3)
  1. PAROXETINE. [Suspect]
     Active Substance: PAROXETINE
     Indication: DEPRESSION
     Dosage: OVERDOSE
     Route: 065
     Dates: start: 20180330, end: 20180330
  2. LEXOTAN 1,5 MG CAPSULE RIGIDE [Suspect]
     Active Substance: BROMAZEPAM
     Indication: DEPRESSION
     Dosage: OVERDOSE
  3. EUTIROX 25 MICROGRAMMI COMPRESSE [Concomitant]
     Active Substance: LEVOTHYROXINE SODIUM
     Dosage: 25 MICROGRAM COMPRESSED

REACTIONS (2)
  - Intentional self-injury [Recovered/Resolved]
  - Sopor [Recovered/Resolved]

NARRATIVE: CASE EVENT DATE: 20180330
